FAERS Safety Report 25868969 (Version 1)
Quarter: 2025Q4

REPORT INFORMATION
  Report Type: Spontaneous
  Country: EU (occurrence: EU)
  Receive Date: 20251001
  Receipt Date: 20251001
  Transmission Date: 20260117
  Serious: Yes (Life-Threatening, Other)
  Sender: CHEPLAPHARM
  Company Number: None

PATIENT
  Age: 58 Year
  Sex: Male

DRUGS (6)
  1. QUETIAPINE [Suspect]
     Active Substance: QUETIAPINE
  2. CANNABIS SATIVA SUBSP. INDICA TOP [Suspect]
     Active Substance: CANNABIS SATIVA SUBSP. INDICA TOP
  3. ALPRAZOLAM [Suspect]
     Active Substance: ALPRAZOLAM
  4. DIAZEPAM [Suspect]
     Active Substance: DIAZEPAM
  5. LORMETAZEPAM [Suspect]
     Active Substance: LORMETAZEPAM
  6. CYAMEMAZINE [Suspect]
     Active Substance: CYAMEMAZINE

REACTIONS (7)
  - Coma [Unknown]
  - Seizure [Unknown]
  - Hyperkalaemia [Unknown]
  - Bradycardia [Unknown]
  - Hypertension [Unknown]
  - Miosis [Unknown]
  - Substance use disorder [Unknown]

NARRATIVE: CASE EVENT DATE: 20250605
